APPROVED DRUG PRODUCT: RABEPRAZOLE SODIUM
Active Ingredient: RABEPRAZOLE SODIUM
Strength: 20MG
Dosage Form/Route: TABLET, DELAYED RELEASE;ORAL
Application: A078964 | Product #001 | TE Code: AB
Applicant: CHARTWELL RX SCIENCES LLC
Approved: Nov 8, 2013 | RLD: No | RS: No | Type: RX